FAERS Safety Report 13948962 (Version 2)
Quarter: 2017Q4

REPORT INFORMATION
  Report Type: Report from Study
  Country: US (occurrence: BR)
  Receive Date: 20170908
  Receipt Date: 20171009
  Transmission Date: 20180320
  Serious: Yes (Other)
  Sender: FDA-Public Use
  Company Number: US-SUNOVION-2017SUN003936

PATIENT
  Sex: Female
  Weight: 70 kg

DRUGS (2)
  1. INDACATEROL AND GLYCOPYRROLATE [Suspect]
     Active Substance: GLYCOPYRROLATE\INDACATEROL MALEATE
     Indication: CHRONIC OBSTRUCTIVE PULMONARY DISEASE
  2. INDACATEROL AND GLYCOPYRROLATE [Suspect]
     Active Substance: GLYCOPYRROLATE\INDACATEROL MALEATE
     Indication: EMPHYSEMA
     Dosage: 1 DF(GLYCOPYRRONIUM BROMIDE 50 UG/ INDACATEROL 110 UG) , QD
     Route: 055

REACTIONS (10)
  - Cold sweat [Unknown]
  - Emphysema [Unknown]
  - Hyperhidrosis [Unknown]
  - Malaise [Unknown]
  - Cough [Unknown]
  - Blood glucose increased [Unknown]
  - Pain [Unknown]
  - Sensitivity to weather change [Unknown]
  - Condition aggravated [Unknown]
  - Limb discomfort [Not Recovered/Not Resolved]
